FAERS Safety Report 17219875 (Version 2)
Quarter: 2020Q1

REPORT INFORMATION
  Report Type: Spontaneous
  Country: US (occurrence: US)
  Receive Date: 20191231
  Receipt Date: 20200117
  Transmission Date: 20200409
  Serious: No
  Sender: FDA-Public Use
  Company Number: US-SA-2019SA360474

PATIENT
  Age: 60 Year
  Sex: Female

DRUGS (3)
  1. TROLAMINE SALICYLATE. [Suspect]
     Active Substance: TROLAMINE SALICYLATE
     Indication: BACK PAIN
     Dosage: 3 OZ TUBE
  2. MENTHOL. [Concomitant]
     Active Substance: MENTHOL
     Indication: BACK PAIN
  3. BENGAY ARTHRITIS PAIN RELIEVING [Concomitant]
     Active Substance: MENTHOL\METHYL SALICYLATE

REACTIONS (1)
  - Drug ineffective [Unknown]

NARRATIVE: CASE EVENT DATE: 20191218
